FAERS Safety Report 13530523 (Version 1)
Quarter: 2017Q2

REPORT INFORMATION
  Report Type: Spontaneous
  Country: US (occurrence: US)
  Receive Date: 20170510
  Receipt Date: 20170510
  Transmission Date: 20170830
  Serious: No
  Sender: FDA-Public Use
  Company Number: US-ENDO PHARMACEUTICALS INC-2016-006428

PATIENT
  Sex: Male
  Weight: 75.28 kg

DRUGS (4)
  1. DIAZEPAM 10MG [Suspect]
     Active Substance: DIAZEPAM
     Dosage: 10MG TABLET BROKEN IN HALF AND THEN CHIPPING OFF A LITTLE MORE TO EQUAL 9MG IN TWO DIVIDED DOSES
     Route: 065
     Dates: start: 201509, end: 201603
  2. DIAZEPAM 10MG [Suspect]
     Active Substance: DIAZEPAM
     Dosage: 10MG TABLET, BROKEN IN HALF AND THEN TAKING ANOTHER PIECE OFF TO EQUAL 4MG TAKEN TWICE DAILY
     Route: 065
     Dates: start: 201604, end: 201610
  3. DIAZEPAM. [Suspect]
     Active Substance: DIAZEPAM
     Indication: ANXIETY
     Dosage: 10MG TABLET BROKEN IN HALF AND THEN TAKING 4MG TWICE DAILY
     Route: 065
     Dates: start: 2016
  4. DIAZEPAM 10MG [Suspect]
     Active Substance: DIAZEPAM
     Indication: ANXIETY
     Dosage: 10MG TABLET, BROKEN IN HALF TAKING 5MG TWICE DAILY
     Route: 065
     Dates: start: 2011, end: 201509

REACTIONS (6)
  - Tinnitus [None]
  - Headache [Recovered/Resolved]
  - Arrhythmia [Recovered/Resolved]
  - Palpitations [Recovered/Resolved]
  - Nausea [Recovered/Resolved]
  - Wrong technique in product usage process [Unknown]

NARRATIVE: CASE EVENT DATE: 2014
